FAERS Safety Report 7045405-8 (Version None)
Quarter: 2010Q4

REPORT INFORMATION
  Report Type: 
  Country: None (occurrence: None)
  Receive Date: 20101014
  Receipt Date: 20100901
  Transmission Date: 20110411
  Serious: No
  Sender: FDA-Public Use
  Company Number: US-ALLERGAN-1011333US

PATIENT
  Age: 57 Year
  Sex: Female

DRUGS (4)
  1. LATISSE [Suspect]
     Indication: GROWTH OF EYELASHES
     Dosage: 1 GTT, QHS
  2. THYROXIN [Concomitant]
     Dosage: UNK
  3. HYPERTENSION MEDICATION [Concomitant]
  4. HYPERCHOLESTEROL DRUG [Concomitant]

REACTIONS (1)
  - HAIR GROWTH ABNORMAL [None]
